FAERS Safety Report 18425688 (Version 4)
Quarter: 2020Q4

REPORT INFORMATION
  Report Type: Spontaneous
  Country: JP (occurrence: JP)
  Receive Date: 20201026
  Receipt Date: 20201209
  Transmission Date: 20210114
  Serious: Yes (Hospitalization)
  Sender: FDA-Public Use
  Company Number: JP-AMGEN-JPNSP2020162926

PATIENT
  Age: 75 Year
  Sex: Female
  Weight: 37 kg

DRUGS (1)
  1. EVENITY [Suspect]
     Active Substance: ROMOSOZUMAB-AQQG
     Indication: OSTEOPOROSIS
     Dosage: 210 MILLIGRAM
     Route: 058
     Dates: start: 20201007, end: 20201007

REACTIONS (13)
  - Feeling abnormal [Recovered/Resolved]
  - Dizziness [Recovered/Resolved]
  - Protein total decreased [Unknown]
  - International normalised ratio decreased [Unknown]
  - Prothrombin level increased [Unknown]
  - Blood calcium decreased [Unknown]
  - Drug eruption [Recovering/Resolving]
  - Head discomfort [Recovered/Resolved]
  - Blood pressure decreased [Recovered/Resolved]
  - Blood glucose increased [Unknown]
  - Blood albumin decreased [Unknown]
  - Activated partial thromboplastin time shortened [Unknown]
  - White blood cell count decreased [Unknown]

NARRATIVE: CASE EVENT DATE: 20201007
